FAERS Safety Report 8535512-2 (Version None)
Quarter: 2012Q3

REPORT INFORMATION
  Report Type: 
  Country: None (occurrence: None)
  Receive Date: 20120718
  Receipt Date: 20120718
  Transmission Date: 20120928
  Serious: Yes (Other)
  Sender: FDA-Public Use
  Company Number: None

PATIENT
  Age: 65 Year
  Sex: Male
  Weight: 68.0396 kg

DRUGS (1)
  1. METRONIDAZOLE [Suspect]
     Indication: DIVERTICULITIS
     Dosage: 500 MG 2X/DAY PO
     Route: 048
     Dates: start: 20120705, end: 20120711

REACTIONS (12)
  - ALANINE AMINOTRANSFERASE INCREASED [None]
  - GASTRIC DISORDER [None]
  - LYMPHOCYTE PERCENTAGE DECREASED [None]
  - LYMPHOCYTE COUNT [None]
  - LISTLESS [None]
  - DIZZINESS [None]
  - DRUG TOLERANCE DECREASED [None]
  - LIVER DISORDER [None]
  - MALAISE [None]
  - NAUSEA [None]
  - ABDOMINAL PAIN UPPER [None]
  - ANXIETY [None]
